FAERS Safety Report 5224767-8 (Version None)
Quarter: 2007Q1

REPORT INFORMATION
  Report Type: 
  Country: None (occurrence: None)
  Receive Date: 20070129
  Receipt Date: 20070129
  Transmission Date: 20070707
  Serious: Yes (Life-Threatening, Hospitalization, Other)
  Sender: FDA-Public Use
  Company Number: None

PATIENT
  Age: 51 Year
  Sex: Male
  Weight: 68.0396 kg

DRUGS (2)
  1. CELEBREX 200MG PFIEZER [Suspect]
     Indication: TENDONITIS
     Dosage: 200MG DAILY PO
     Route: 048
     Dates: start: 19980310, end: 19990520
  2. GADODLAMIDE [Suspect]
     Indication: DIAGNOSTIC PROCEDURE
     Dosage: 1-2 TIMES IV
     Route: 042
     Dates: start: 19990601, end: 19990801

REACTIONS (9)
  - HAEMODIALYSIS [None]
  - ILL-DEFINED DISORDER [None]
  - LICHEN MYXOEDEMATOSUS [None]
  - NEPHROGENIC FIBROSING DERMOPATHY [None]
  - OEDEMA PERIPHERAL [None]
  - PAIN IN EXTREMITY [None]
  - RENAL FAILURE [None]
  - THROMBOSIS [None]
  - WHEELCHAIR USER [None]
